FAERS Safety Report 20247153 (Version 2)
Quarter: 2022Q1

REPORT INFORMATION
  Report Type: Spontaneous
  Country: US (occurrence: US)
  Receive Date: 20211229
  Receipt Date: 20220202
  Transmission Date: 20220423
  Serious: No
  Sender: FDA-Public Use
  Company Number: US-PFIZER INC-2021606403

PATIENT
  Age: 67 Year
  Sex: Female
  Weight: 58.97 kg

DRUGS (9)
  1. IBRANCE [Suspect]
     Active Substance: PALBOCICLIB
     Indication: Neoplasm malignant
     Dosage: 125 MG
  2. IBRANCE [Suspect]
     Active Substance: PALBOCICLIB
     Indication: Breast cancer metastatic
     Dosage: UNK
  3. IBRANCE [Suspect]
     Active Substance: PALBOCICLIB
     Dosage: 125 MG, CYCLIC(125MG ONCE A DAY FOR 21 DAYS, 7 DAYS OFF. )
     Dates: start: 20210715
  4. IBRANCE [Suspect]
     Active Substance: PALBOCICLIB
     Dosage: 100 MG
  5. IBRANCE [Suspect]
     Active Substance: PALBOCICLIB
     Dosage: 100 MG, CYCLIC(ONCE A DAY FOR 21 DAYS AND OFF FOR SEVEN DAYS)
  6. IBRANCE [Suspect]
     Active Substance: PALBOCICLIB
     Dosage: 150 MG, CYCLIC(21 DAYS ON AND SEVEN DAYS OFF)
     Route: 048
  7. TAXOL [Concomitant]
     Active Substance: PACLITAXEL
     Indication: Breast cancer female
     Dosage: UNK
     Dates: end: 201603
  8. CISPLATIN [Concomitant]
     Active Substance: CISPLATIN
     Indication: Breast cancer female
     Dosage: UNK
     Dates: end: 201603
  9. ADRIAMYCIN [Concomitant]
     Active Substance: DOXORUBICIN HYDROCHLORIDE
     Indication: Breast cancer female
     Dosage: UNK
     Dates: end: 201602

REACTIONS (10)
  - Asthenia [Unknown]
  - Platelet count decreased [Not Recovered/Not Resolved]
  - Neutrophil count decreased [Not Recovered/Not Resolved]
  - White blood cell count decreased [Not Recovered/Not Resolved]
  - Vomiting [Recovered/Resolved]
  - Nausea [Recovered/Resolved]
  - Skin exfoliation [Recovering/Resolving]
  - Dyspepsia [Recovering/Resolving]
  - Full blood count abnormal [Recovering/Resolving]
  - Red blood cell count abnormal [Recovering/Resolving]

NARRATIVE: CASE EVENT DATE: 20160201
